FAERS Safety Report 11086650 (Version 1)
Quarter: 2015Q2

REPORT INFORMATION
  Report Type: Report from Study
  Country: US (occurrence: None)
  Receive Date: 20150430
  Receipt Date: 20150430
  Transmission Date: 20150821
  Serious: Yes (Death)
  Sender: FDA-Public Use
  Company Number: 2015AP008600

PATIENT
  Sex: Female
  Weight: 68 kg

DRUGS (8)
  1. FERRIPROX [Suspect]
     Active Substance: DEFERIPRONE
     Indication: SICKLE CELL ANAEMIA
     Dosage: 77 MG/KG, QD, ORAL
     Route: 048
     Dates: start: 20140206
  2. FERRIPROX [Suspect]
     Active Substance: DEFERIPRONE
     Indication: HAEMOCHROMATOSIS
     Dosage: 77 MG/KG, QD, ORAL
     Route: 048
     Dates: start: 20140206
  3. FOLIC ACID. [Concomitant]
     Active Substance: FOLIC ACID
  4. LETAIRIS [Concomitant]
     Active Substance: AMBRISENTAN
  5. OXYCODONE [Concomitant]
     Active Substance: OXYCODONE
  6. LACTULOSE. [Concomitant]
     Active Substance: LACTULOSE
  7. DESFERAL (DEFEROXAMINE MESILATE) [Concomitant]
  8. METOPROLOL [Concomitant]
     Active Substance: METOPROLOL

REACTIONS (1)
  - Death [None]
